FAERS Safety Report 12925602 (Version 2)
Quarter: 2016Q4

REPORT INFORMATION
  Report Type: Spontaneous
  Country: US (occurrence: US)
  Receive Date: 20161108
  Receipt Date: 20161207
  Transmission Date: 20170207
  Serious: Yes (Other)
  Sender: FDA-Public Use
  Company Number: US-SA-2016SA165788

PATIENT
  Age: 74 Year
  Sex: Male

DRUGS (3)
  1. ALIROCUMAB PREFILLED PEN [Concomitant]
     Active Substance: ALIROCUMAB
     Indication: TYPE V HYPERLIPIDAEMIA
     Dates: start: 20160601
  2. PRALUENT [Suspect]
     Active Substance: ALIROCUMAB
     Indication: TYPE V HYPERLIPIDAEMIA
     Route: 058
     Dates: start: 20160715
  3. PRALUENT [Suspect]
     Active Substance: ALIROCUMAB
     Indication: HYPERLIPIDAEMIA
     Route: 058
     Dates: start: 20160715

REACTIONS (9)
  - Nausea [Recovering/Resolving]
  - Arrhythmia [Recovering/Resolving]
  - Abdominal discomfort [Recovered/Resolved]
  - Malaise [Recovering/Resolving]
  - Cystitis [Recovered/Resolved]
  - Head discomfort [Recovered/Resolved]
  - Sinus disorder [Recovering/Resolving]
  - Headache [Recovering/Resolving]
  - Heart rate decreased [Recovering/Resolving]
